FAERS Safety Report 7222891-1 (Version None)
Quarter: 2011Q1

REPORT INFORMATION
  Report Type: 
  Country: None (occurrence: None)
  Receive Date: 20110106
  Receipt Date: 20110106
  Transmission Date: 20110831
  Serious: Yes (Other)
  Sender: FDA-Public Use
  Company Number: None

PATIENT
  Age: 81 Year
  Sex: Female
  Weight: 67.586 kg

DRUGS (2)
  1. TRICOR [Suspect]
     Dosage: FENFIBRATE 134MG 1 DAILY BEDTIME
  2. ZOCOR [Suspect]
     Dosage: SIMVASTATIN 80MG 1 DAILY

REACTIONS (3)
  - SLEEP DISORDER [None]
  - PAIN [None]
  - MUSCLE SPASMS [None]
